FAERS Safety Report 19440698 (Version 1)
Quarter: 2021Q2

REPORT INFORMATION
  Report Type: Spontaneous
  Country: US (occurrence: US)
  Receive Date: 20210621
  Receipt Date: 20210621
  Transmission Date: 20210717
  Serious: No
  Sender: FDA-Public Use
  Company Number: US-AIMMUNE THERAPEUTICS, INC.-2021AIMT00344

PATIENT

DRUGS (3)
  1. PALFORZIA [Suspect]
     Active Substance: PEANUT
     Dosage: 80 MG, 1X/DAY, LEVEL 7
     Route: 048
     Dates: start: 20210507, end: 20210512
  2. PALFORZIA [Suspect]
     Active Substance: PEANUT
     Dosage: 40MG, ORAL, 1X/DAY, DOSE DECREASED
     Dates: start: 20210512, end: 20210520
  3. PALFORZIA [Suspect]
     Active Substance: PEANUT
     Indication: FOOD ALLERGY
     Dosage: 120 MG, 1X/DAY, LEVEL 7
     Route: 048
     Dates: start: 20210429, end: 20210506

REACTIONS (3)
  - Nausea [Recovered/Resolved]
  - Retching [Unknown]
  - Retching [Recovered/Resolved]

NARRATIVE: CASE EVENT DATE: 20210429
